FAERS Safety Report 5252328-3 (Version None)
Quarter: 2007Q1

REPORT INFORMATION
  Report Type: 
  Country: None (occurrence: None)
  Receive Date: 20070301
  Receipt Date: 20060503
  Transmission Date: 20070707
  Serious: Yes (Hospitalization, Other)
  Sender: FDA-Public Use
  Company Number: US-BRISTOL-MYERS SQUIBB COMPANY-13365598

PATIENT
  Age: 48 Year
  Sex: Female

DRUGS (4)
  1. TAXOL [Suspect]
     Indication: BREAST CANCER
     Dates: start: 20060503, end: 20060503
  2. TAGAMET [Concomitant]
  3. BENADRYL [Concomitant]
  4. DECADRON [Concomitant]
     Route: 042

REACTIONS (3)
  - DEHYDRATION [None]
  - DIZZINESS [None]
  - HYPOAESTHESIA ORAL [None]
